FAERS Safety Report 17115036 (Version 1)
Quarter: 2019Q4

REPORT INFORMATION
  Report Type: Spontaneous
  Country: US (occurrence: US)
  Receive Date: 20191201
  Receipt Date: 20191201
  Transmission Date: 20200122
  Serious: Yes (Life-Threatening)
  Sender: FDA-Public Use
  Company Number: None

PATIENT
  Age: 39 Year
  Sex: Male
  Weight: 115 kg

DRUGS (1)
  1. LA PEPA NEGRA [DIETARY SUPPLEMENT] [Suspect]
     Active Substance: DIETARY SUPPLEMENT
     Indication: SEXUAL DYSFUNCTION
     Dates: start: 20191201, end: 20191201

REACTIONS (1)
  - Haemorrhage intracranial [None]

NARRATIVE: CASE EVENT DATE: 20191201
